FAERS Safety Report 7050095-4 (Version None)
Quarter: 2010Q4

REPORT INFORMATION
  Report Type: 
  Country: None (occurrence: None)
  Receive Date: 20101012
  Receipt Date: 20100927
  Transmission Date: 20110411
  Serious: Yes (Life-Threatening, Hospitalization)
  Sender: FDA-Public Use
  Company Number: 009557

PATIENT
  Sex: Male
  Weight: 81.6475 kg

DRUGS (11)
  1. CIMZIA [Suspect]
     Indication: CROHN'S DISEASE
     Dosage: (SUBCUTANEOUS)
     Route: 058
     Dates: start: 20100114
  2. CALCIUM [Concomitant]
  3. CENTRUM /00554501/ [Concomitant]
  4. IRON [Concomitant]
  5. BENICAR [Concomitant]
  6. FOLIC ACID [Concomitant]
  7. CYANCOCBALAMIN [Concomitant]
  8. POTASSIUM CHLORIDE [Concomitant]
  9. SULFASALAZINE [Concomitant]
  10. PREDNISONE [Concomitant]
  11. TYLENOL (CAPLET) [Concomitant]

REACTIONS (3)
  - PNEUMONIA [None]
  - PULMONARY THROMBOSIS [None]
  - THROMBOSIS [None]
